FAERS Safety Report 6664689-9 (Version None)
Quarter: 2010Q2

REPORT INFORMATION
  Report Type: 
  Country: None (occurrence: None)
  Receive Date: 20100401
  Receipt Date: 20100329
  Transmission Date: 20101027
  Serious: Yes (Other)
  Sender: FDA-Public Use
  Company Number: GB-MERCK-1003GBR00144

PATIENT
  Age: 66 Year
  Sex: Male

DRUGS (9)
  1. ZOCOR [Suspect]
     Indication: HYPERLIPIDAEMIA
     Route: 048
     Dates: start: 20100220, end: 20100318
  2. ZOCOR [Suspect]
     Indication: MYOCARDIAL ISCHAEMIA
     Route: 048
     Dates: start: 20100220, end: 20100318
  3. RAMIPRIL [Concomitant]
     Route: 065
  4. ASPIRIN [Concomitant]
     Route: 065
  5. BISOPROLOL [Concomitant]
     Route: 065
  6. CLOPIDOGREL BISULFATE [Concomitant]
     Route: 065
  7. PREDNISOLONE [Concomitant]
     Indication: CHRONIC OBSTRUCTIVE PULMONARY DISEASE
     Route: 065
  8. SERETIDE [Concomitant]
     Route: 055
  9. TIOTROPIUM BROMIDE [Concomitant]
     Route: 055

REACTIONS (7)
  - BLOOD CREATINE PHOSPHOKINASE INCREASED [None]
  - FATIGUE [None]
  - LIVER FUNCTION TEST ABNORMAL [None]
  - MUSCULAR WEAKNESS [None]
  - MYALGIA [None]
  - MYOSITIS [None]
  - RENAL FAILURE ACUTE [None]
